FAERS Safety Report 17498892 (Version 1)
Quarter: 2020Q1

REPORT INFORMATION
  Report Type: Spontaneous
  Country: FR (occurrence: FR)
  Receive Date: 20200304
  Receipt Date: 20200304
  Transmission Date: 20200409
  Serious: Yes (Other)
  Sender: FDA-Public Use
  Company Number: FR-MYLANLABS-2020M1023300

PATIENT
  Sex: Male

DRUGS (1)
  1. TRAMADOL. [Suspect]
     Active Substance: TRAMADOL
     Indication: PAIN
     Dosage: 18 DF, 1/DAY
     Route: 048

REACTIONS (3)
  - Drug dependence [Unknown]
  - Overdose [Unknown]
  - Intentional product misuse [Unknown]
